FAERS Safety Report 4313123-2 (Version None)
Quarter: 2004Q1

REPORT INFORMATION
  Report Type: 
  Country: None (occurrence: None)
  Receive Date: 20040304
  Receipt Date: 20040219
  Transmission Date: 20041129
  Serious: Yes (Hospitalization)
  Sender: FDA-Public Use
  Company Number: JP_040102574

PATIENT
  Age: 36 Year
  Sex: Female

DRUGS (9)
  1. ZYPREXA [Suspect]
     Indication: SCHIZOPHRENIA
     Dosage: 10 MG/DAY
     Dates: start: 20020101
  2. HALOPERIDOL [Concomitant]
  3. CLOFEKTON (CLOCAPRAMINE HYDROCHLORIDE) [Concomitant]
  4. LODOPIN (ZOTEPINE) [Concomitant]
  5. IMPROMEN (BROMPERIDOL) [Concomitant]
  6. LULLAN (PEROSPIRONE HYDROCHLORIDE) [Concomitant]
  7. BICAMOL (BIPERIDEN HYDROCHLORIDE) [Concomitant]
  8. ARTANE [Concomitant]
  9. LANDSEN (CLONAZEPAM) [Concomitant]

REACTIONS (5)
  - ATRIAL THROMBOSIS [None]
  - ELECTROCARDIOGRAM ABNORMAL [None]
  - ELECTROCARDIOGRAM ST SEGMENT ABNORMAL [None]
  - PSYCHOTIC DISORDER [None]
  - TACHYCARDIA [None]
